FAERS Safety Report 25062798 (Version 1)
Quarter: 2025Q1

REPORT INFORMATION
  Report Type: Spontaneous
  Country: US (occurrence: None)
  Receive Date: 20250310
  Receipt Date: 20250310
  Transmission Date: 20250409
  Serious: No
  Sender: FDA-CTU
  Company Number: None

PATIENT
  Age: 60 Year
  Sex: Male
  Weight: 96.75 kg

DRUGS (2)
  1. DUPIXENT [Suspect]
     Active Substance: DUPILUMAB
     Dates: start: 20240318
  2. DUPIXENT [Concomitant]
     Active Substance: DUPILUMAB
     Dates: start: 20240318

REACTIONS (3)
  - Brain fog [None]
  - Amnesia [None]
  - Cognitive disorder [None]

NARRATIVE: CASE EVENT DATE: 20250310
